FAERS Safety Report 24140774 (Version 1)
Quarter: 2024Q3

REPORT INFORMATION
  Report Type: Spontaneous
  Country: US (occurrence: US)
  Receive Date: 20240726
  Receipt Date: 20240726
  Transmission Date: 20241017
  Serious: Yes (Death, Other)
  Sender: BRISTOL MYERS SQUIBB
  Company Number: US-BRISTOL-MYERS SQUIBB COMPANY-2024-116952

PATIENT
  Age: 59 Year
  Sex: Male

DRUGS (14)
  1. OPDUALAG [Suspect]
     Active Substance: NIVOLUMAB\RELATLIMAB-RMBW
     Indication: Lymphoma
     Dosage: DOSE : 480/160MG;  FREQ : EVERY 4 WEEKS
     Route: 042
  2. ASPIRIN [Concomitant]
     Active Substance: ASPIRIN
  3. CALCIUM CARBONATE [Concomitant]
     Active Substance: CALCIUM CARBONATE
  4. CHLORTHALIDONE [Concomitant]
     Active Substance: CHLORTHALIDONE
  5. DICLOFENAC [Concomitant]
     Active Substance: DICLOFENAC
  6. ICOSAPENT [Concomitant]
     Active Substance: ICOSAPENT
  7. LACTOSE [Concomitant]
     Active Substance: LACTOSE
  8. LENVATINIB [Concomitant]
     Active Substance: LENVATINIB
  9. LENVIMA [Concomitant]
     Active Substance: LENVATINIB
  10. LEVOTHYROXINE [Concomitant]
     Active Substance: LEVOTHYROXINE\LEVOTHYROXINE SODIUM
  11. LIDOCAINE [Concomitant]
     Active Substance: LIDOCAINE
  12. LORAZEPAM [Concomitant]
     Active Substance: LORAZEPAM
  13. METHADONE [Concomitant]
     Active Substance: METHADONE HYDROCHLORIDE
  14. NAPROXEN [Concomitant]
     Active Substance: NAPROXEN

REACTIONS (2)
  - Malignant melanoma [Fatal]
  - Off label use [Unknown]

NARRATIVE: CASE EVENT DATE: 20240720
